FAERS Safety Report 21437048 (Version 2)
Quarter: 2022Q4

REPORT INFORMATION
  Report Type: Report from Study
  Country: US (occurrence: US)
  Receive Date: 20221010
  Receipt Date: 20221222
  Transmission Date: 20230113
  Serious: Yes (Death)
  Sender: FDA-Public Use
  Company Number: US-OTSUKA-2022_047973

PATIENT
  Age: 92 Year
  Sex: Female

DRUGS (1)
  1. DEXTROMETHORPHAN HYDROBROMIDE\QUINIDINE SULFATE [Suspect]
     Active Substance: DEXTROMETHORPHAN HYDROBROMIDE\QUINIDINE SULFATE
     Indication: Affect lability
     Dosage: 1 DF, QD
     Route: 065
     Dates: start: 20200919, end: 20220311

REACTIONS (1)
  - Death [Fatal]

NARRATIVE: CASE EVENT DATE: 20220318
